FAERS Safety Report 15701666 (Version 2)
Quarter: 2018Q4

REPORT INFORMATION
  Report Type: Spontaneous
  Country: US (occurrence: US)
  Receive Date: 20181208
  Receipt Date: 20181219
  Transmission Date: 20190205
  Serious: Yes (Death)
  Sender: FDA-Public Use
  Company Number: US-HORIZON-RAV-0220-2018

PATIENT
  Age: 19 Year
  Sex: Female

DRUGS (1)
  1. RAVICTI [Suspect]
     Active Substance: GLYCEROL PHENYLBUTYRATE
     Indication: ORNITHINE TRANSCARBAMOYLASE DEFICIENCY
     Dosage: 2 ML TID
     Route: 048
     Dates: start: 20180209

REACTIONS (1)
  - Oncologic complication [Fatal]

NARRATIVE: CASE EVENT DATE: 20181205
